FAERS Safety Report 7405871-2 (Version None)
Quarter: 2011Q2

REPORT INFORMATION
  Report Type: 
  Country: None (occurrence: None)
  Receive Date: 20110406
  Receipt Date: 20110406
  Transmission Date: 20111010
  Serious: No
  Sender: FDA-Public Use
  Company Number: None

PATIENT
  Age: 64 Year
  Sex: Male

DRUGS (1)
  1. VANCOMYCIN [Suspect]
     Dates: start: 20081229, end: 20081229

REACTIONS (3)
  - HEPATITIS [None]
  - LIVER INJURY [None]
  - CHOLESTASIS [None]
